FAERS Safety Report 12723111 (Version 1)
Quarter: 2016Q3

REPORT INFORMATION
  Report Type: Spontaneous
  Country: US (occurrence: US)
  Receive Date: 20160908
  Receipt Date: 20160908
  Transmission Date: 20161109
  Serious: Yes (Other)
  Sender: FDA-Public Use
  Company Number: US-ZYDUS-012029

PATIENT
  Age: 67 Year
  Sex: Female

DRUGS (7)
  1. HYDROMORPHONE/HYDROMORPHONE HYDROCHLORIDE [Suspect]
     Active Substance: HYDROMORPHONE
     Indication: POST LAMINECTOMY SYNDROME
     Dosage: DECREASED 32%
     Route: 037
  2. PREGABALIN. [Suspect]
     Active Substance: PREGABALIN
     Indication: PRODUCT USED FOR UNKNOWN INDICATION
     Route: 065
  3. TRAMADOL. [Suspect]
     Active Substance: TRAMADOL
     Indication: PRODUCT USED FOR UNKNOWN INDICATION
     Route: 065
  4. AMLODIPINE [Suspect]
     Active Substance: AMLODIPINE BESYLATE
     Indication: PRODUCT USED FOR UNKNOWN INDICATION
     Route: 065
  5. BUPIVACAINE. [Suspect]
     Active Substance: BUPIVACAINE
     Indication: POST LAMINECTOMY SYNDROME
     Route: 037
  6. HYDROMORPHONE/HYDROMORPHONE HYDROCHLORIDE [Suspect]
     Active Substance: HYDROMORPHONE
     Indication: POST LAMINECTOMY SYNDROME
     Dosage: DECREASED 32%
     Route: 037
  7. HYDROMORPHONE/HYDROMORPHONE HYDROCHLORIDE [Suspect]
     Active Substance: HYDROMORPHONE
     Indication: POST LAMINECTOMY SYNDROME
     Route: 037

REACTIONS (5)
  - Respiratory depression [Unknown]
  - Pain [Unknown]
  - Urinary retention [Unknown]
  - Device kink [None]
  - Oedema peripheral [Recovered/Resolved]
